FAERS Safety Report 8214169-4 (Version None)
Quarter: 2012Q1

REPORT INFORMATION
  Report Type: 
  Country: None (occurrence: None)
  Receive Date: 20120315
  Receipt Date: 20120315
  Transmission Date: 20120608
  Serious: Yes (Death, Life-Threatening, Hospitalization)
  Sender: FDA-Public Use
  Company Number: None

PATIENT
  Sex: Female
  Weight: 76.2043 kg

DRUGS (2)
  1. SUBOXONE [Suspect]
     Dosage: 8 MG 1 3/4 QD SL
     Route: 060
     Dates: start: 20120310
  2. SUBOXONE [Suspect]
     Dosage: 8 MG 1 3/4 QD SL
     Route: 060
     Dates: start: 20120308

REACTIONS (1)
  - ANAPHYLACTOID REACTION [None]
